FAERS Safety Report 4579245-6 (Version None)
Quarter: 2005Q1

REPORT INFORMATION
  Report Type: 
  Country: None (occurrence: None)
  Receive Date: 20050208
  Receipt Date: 20050208
  Transmission Date: 20050727
  Serious: Yes (Other)
  Sender: FDA-Public Use
  Company Number: None

PATIENT
  Age: 41 Year
  Sex: Male

DRUGS (1)
  1. EFFEXOR XR [Suspect]
     Indication: DEPRESSION
     Dosage: 1 CAPSULE BY MOUTH DAILY
     Route: 048
     Dates: start: 20041201, end: 20050121

REACTIONS (3)
  - HYPOAESTHESIA [None]
  - MONONEURITIS [None]
  - THERAPY NON-RESPONDER [None]
